APPROVED DRUG PRODUCT: DEXTROSE 60% IN PLASTIC CONTAINER
Active Ingredient: DEXTROSE
Strength: 60GM/100ML
Dosage Form/Route: INJECTABLE;INJECTION
Application: N019346 | Product #001
Applicant: HOSPIRA INC
Approved: Jan 25, 1985 | RLD: No | RS: No | Type: DISCN